FAERS Safety Report 24098174 (Version 2)
Quarter: 2024Q3

REPORT INFORMATION
  Report Type: Spontaneous
  Country: SI (occurrence: SI)
  Receive Date: 20240716
  Receipt Date: 20240906
  Transmission Date: 20241017
  Serious: Yes (Life-Threatening, Hospitalization, Other)
  Sender: MYLAN
  Company Number: SI-GLENMARK PHARMACEUTICALS-2024GMK090444

PATIENT
  Age: 60 Year
  Sex: Female

DRUGS (20)
  1. ARIPIPRAZOLE [Suspect]
     Active Substance: ARIPIPRAZOLE
     Indication: Extrapyramidal disorder
     Dosage: 5 MILLIGRAM, QD, 5 MILLIGRAM PER DAY
     Route: 065
  2. ARIPIPRAZOLE [Suspect]
     Active Substance: ARIPIPRAZOLE
     Indication: Psychotic disorder
     Dosage: 10 MILLIGRAM, QD, 10 MILLIGRAM PER DAY
     Route: 065
     Dates: start: 202210, end: 202212
  3. OLANZAPINE [Suspect]
     Active Substance: OLANZAPINE
     Indication: Psychotic disorder
     Dosage: 5 MILLIGRAM
     Route: 065
     Dates: start: 202210, end: 202212
  4. OLANZAPINE [Suspect]
     Active Substance: OLANZAPINE
     Dosage: 20 MILLIGRAM, QD
     Route: 065
     Dates: start: 202301, end: 202303
  5. BREXPIPRAZOLE [Suspect]
     Active Substance: BREXPIPRAZOLE
     Indication: Akathisia
     Dosage: 1 MILLIGRAM
     Route: 065
     Dates: start: 202210, end: 202212
  6. BREXPIPRAZOLE [Suspect]
     Active Substance: BREXPIPRAZOLE
     Indication: Psychotic disorder
  7. BIPERIDEN [Concomitant]
     Active Substance: BIPERIDEN
     Indication: Bradykinesia
     Dosage: 4 MILLIGRAM, QD
     Route: 065
     Dates: start: 202210, end: 202210
  8. BIPERIDEN [Concomitant]
     Active Substance: BIPERIDEN
     Indication: Muscle rigidity
     Dosage: 6 MILLIGRAM, QD
     Route: 065
     Dates: start: 202210, end: 202212
  9. BIPERIDEN [Concomitant]
     Active Substance: BIPERIDEN
     Indication: Reduced facial expression
  10. FLUPHENAZINE [Suspect]
     Active Substance: FLUPHENAZINE
     Indication: Psychotic disorder
     Dosage: 10 MILLIGRAM, QD,(DIVIDED INTO TWO DOSES)
     Route: 065
     Dates: start: 202207, end: 202210
  11. FLUPHENAZINE [Suspect]
     Active Substance: FLUPHENAZINE
     Dosage: UNK,(DOSE REDUCED)
     Route: 065
     Dates: start: 202210, end: 202210
  12. RISPERIDONE [Suspect]
     Active Substance: RISPERIDONE
     Indication: Persecutory delusion
     Dosage: 1 MILLIGRAM, QD
     Route: 065
     Dates: start: 201903
  13. RISPERIDONE [Suspect]
     Active Substance: RISPERIDONE
     Indication: Hallucination, auditory
     Dosage: 2 MILLIGRAM, QD,(DIVIDED INTO TWO DOSES)
     Route: 065
     Dates: start: 201903, end: 202207
  14. RISPERIDONE [Suspect]
     Active Substance: RISPERIDONE
     Indication: Psychotic disorder
     Dosage: 9 MILLIGRAM, QD,(DIVIDED INTO TWO DOSES)
     Route: 065
     Dates: start: 202207, end: 202210
  15. RISPERIDONE [Suspect]
     Active Substance: RISPERIDONE
     Dosage: 6 MILLIGRAM, QD
     Route: 065
     Dates: start: 202210, end: 202210
  16. RISPERIDONE [Suspect]
     Active Substance: RISPERIDONE
     Dosage: 2 MILLIGRAM, QD,(DIVIDED INTO TWO DOSES)
     Route: 065
     Dates: start: 202210, end: 202210
  17. AMOXICILLIN\CLAVULANATE POTASSIUM [Concomitant]
     Active Substance: AMOXICILLIN\CLAVULANATE POTASSIUM
     Indication: Antibiotic therapy
     Dosage: UNK
     Route: 065
  18. AZITHROMYCIN [Concomitant]
     Active Substance: AZITHROMYCIN
     Indication: Antibiotic therapy
     Dosage: UNK
     Route: 065
  19. LORAZEPAM [Concomitant]
     Active Substance: LORAZEPAM
     Indication: Insomnia
     Dosage: 1 MILLIGRAM, TID (THREE TIMES DAILY)
     Route: 065
     Dates: start: 2022
  20. LORAZEPAM [Concomitant]
     Active Substance: LORAZEPAM
     Dosage: 2 MILLIGRAM, BID
     Route: 065

REACTIONS (7)
  - Neuroleptic malignant syndrome [Unknown]
  - Pneumonia [Recovering/Resolving]
  - Akathisia [Recovered/Resolved]
  - Extrapyramidal disorder [Recovered/Resolved]
  - Treatment noncompliance [Recovered/Resolved]
  - Dysphagia [Unknown]
  - Dysphonia [Unknown]

NARRATIVE: CASE EVENT DATE: 20220101
